FAERS Safety Report 18007068 (Version 1)
Quarter: 2020Q3

REPORT INFORMATION
  Report Type: Spontaneous
  Country: US (occurrence: US)
  Receive Date: 20200710
  Receipt Date: 20200710
  Transmission Date: 20201103
  Serious: Yes (Hospitalization, Other)
  Sender: FDA-Public Use
  Company Number: US-APOTEX-2020AP013081

PATIENT
  Age: 42 Year
  Sex: Female
  Weight: 75 kg

DRUGS (2)
  1. QUETIAPINE [QUETIAPINE FUMARATE] [Suspect]
     Active Substance: QUETIAPINE FUMARATE
     Indication: PRODUCT USED FOR UNKNOWN INDICATION
     Dosage: 20 GRAM
     Route: 048
  2. DIVALPROEX SODIUM. [Suspect]
     Active Substance: DIVALPROEX SODIUM
     Indication: PRODUCT USED FOR UNKNOWN INDICATION
     Dosage: 26 GRAM
     Route: 048

REACTIONS (7)
  - Overdose [Unknown]
  - Pneumonia aspiration [Unknown]
  - Anticonvulsant drug level above therapeutic [Recovered/Resolved]
  - Metabolic acidosis [Unknown]
  - Toxicity to various agents [Unknown]
  - Tachycardia [Unknown]
  - Respiratory distress [Unknown]
